FAERS Safety Report 6232985-5 (Version None)
Quarter: 2009Q2

REPORT INFORMATION
  Report Type: 
  Country: None (occurrence: None)
  Receive Date: 20090617
  Receipt Date: 20090608
  Transmission Date: 20091009
  Serious: Yes (Congenital Anomaly)
  Sender: FDA-Public Use
  Company Number: A0679465A

PATIENT
  Sex: Male

DRUGS (3)
  1. PAXIL [Suspect]
     Indication: ANXIETY
  2. PAROXETINE HYDROCHLORIDE [Suspect]
     Indication: ANXIETY
     Route: 061
  3. VITAMIN TAB [Concomitant]

REACTIONS (7)
  - CONGENITAL ANOMALY [None]
  - CONGENITAL AORTIC STENOSIS [None]
  - DRUG EXPOSURE DURING PREGNANCY [None]
  - MATERNAL DRUGS AFFECTING FOETUS [None]
  - PULMONARY ARTERY STENOSIS CONGENITAL [None]
  - RESPIRATORY SYNCYTIAL VIRUS INFECTION [None]
  - VENTRICULAR SEPTAL DEFECT [None]
